FAERS Safety Report 21130818 (Version 1)
Quarter: 2022Q3

REPORT INFORMATION
  Report Type: Spontaneous
  Country: NO (occurrence: NO)
  Receive Date: 20220726
  Receipt Date: 20220726
  Transmission Date: 20221027
  Serious: Yes (Life-Threatening, Other)
  Sender: FDA-Public Use
  Company Number: None

PATIENT

DRUGS (1)
  1. GRAZAX [Suspect]
     Active Substance: PHLEUM PRATENSE POLLEN
     Indication: Product used for unknown indication
     Dosage: UNK
     Route: 065
     Dates: start: 201808

REACTIONS (32)
  - Anaphylactic reaction [Unknown]
  - Dacryocystitis [Unknown]
  - Dysphagia [Unknown]
  - Lip pruritus [Unknown]
  - Palpitations [Unknown]
  - Dizziness [Unknown]
  - Fatigue [Unknown]
  - Discomfort [Unknown]
  - Erythema [Unknown]
  - Oral pruritus [Unknown]
  - Pharyngeal swelling [Unknown]
  - Tongue pruritus [Unknown]
  - Abdominal pain [Unknown]
  - Dyspnoea [Unknown]
  - Confusional state [Unknown]
  - Dysphonia [Unknown]
  - Skin burning sensation [Unknown]
  - Peripheral coldness [Unknown]
  - Pruritus [Unknown]
  - Ear discomfort [Unknown]
  - Anxiety [Unknown]
  - Cold sweat [Unknown]
  - Seborrhoeic dermatitis [Unknown]
  - Nausea [Unknown]
  - Rash [Unknown]
  - Blood pressure decreased [Unknown]
  - Asthenia [Unknown]
  - Throat tightness [Unknown]
  - Wheezing [Unknown]
  - Chest pain [Unknown]
  - Visual impairment [Unknown]
  - Hypoaesthesia [Unknown]

NARRATIVE: CASE EVENT DATE: 20180801
